FAERS Safety Report 4387236-3 (Version None)
Quarter: 2004Q2

REPORT INFORMATION
  Report Type: 
  Country: None (occurrence: None)
  Receive Date: 20040630
  Receipt Date: 20040329
  Transmission Date: 20050107
  Serious: No
  Sender: FDA-Public Use
  Company Number: US-GLAXOSMITHKLINE-A0504866A

PATIENT
  Age: 69 Year
  Sex: Female

DRUGS (3)
  1. ADVAIR HFA [Suspect]
     Dosage: 1PUFF TWICE PER DAY
     Route: 055
  2. COMBIVENT [Concomitant]
  3. MAXZIDE [Concomitant]

REACTIONS (2)
  - DYSPNOEA [None]
  - PRODUCTIVE COUGH [None]
